FAERS Safety Report 5513785-8 (Version None)
Quarter: 2007Q4

REPORT INFORMATION
  Report Type: 
  Country: None (occurrence: None)
  Receive Date: 20071113
  Receipt Date: 20071112
  Transmission Date: 20080405
  Serious: Yes (Death, Other)
  Sender: FDA-Public Use
  Company Number: PHNR2007AU02040

PATIENT
  Age: 32 Year
  Sex: Male

DRUGS (6)
  1. CLOZARIL [Suspect]
     Dosage: 12-450MG DAILY
     Route: 048
     Dates: start: 19990506, end: 20071027
  2. ALCOHOL [Suspect]
  3. DIAZEPAM [Suspect]
     Dosage: 5 MG, BID PRN
  4. CITALOPRAM [Concomitant]
     Dosage: 10 MG, QD MANE
     Dates: start: 20071010
  5. VALPRO [Concomitant]
     Dosage: 400 MG, QD NOCTE
     Dates: start: 20060101
  6. OXYBUTYNIN CHLORIDE [Concomitant]
     Dosage: 10 MG, QD NOCTE
     Dates: start: 20050101

REACTIONS (2)
  - ANTIPSYCHOTIC DRUG LEVEL INCREASED [None]
  - ASPHYXIA [None]
